FAERS Safety Report 8341036-8 (Version None)
Quarter: 2012Q2

REPORT INFORMATION
  Report Type: 
  Country: None (occurrence: None)
  Receive Date: 20120507
  Receipt Date: 20120426
  Transmission Date: 20120825
  Serious: Yes (Death, Hospitalization)
  Sender: FDA-Public Use
  Company Number: US-GLAXOSMITHKLINE-A0729743A

PATIENT
  Age: 75 Year
  Sex: Male
  Weight: 85.5 kg

DRUGS (7)
  1. PLAVIX [Concomitant]
     Dates: start: 20050728
  2. METFORMIN HCL [Concomitant]
     Dates: start: 20050512, end: 20051010
  3. DIOVAN [Concomitant]
     Dates: start: 20050728, end: 20051010
  4. LUMIGAN [Concomitant]
     Dates: start: 20050728, end: 20051010
  5. TOPROL-XL [Concomitant]
  6. AVANDIA [Suspect]
     Indication: DIABETES MELLITUS
     Dosage: 4MG TWICE PER DAY
     Route: 048
     Dates: start: 20050512, end: 20070413
  7. AVANDAMET [Suspect]
     Indication: DIABETES MELLITUS
     Route: 048

REACTIONS (2)
  - CARDIO-RESPIRATORY ARREST [None]
  - CARDIAC FAILURE CONGESTIVE [None]
